FAERS Safety Report 7927972-2 (Version None)
Quarter: 2011Q4

REPORT INFORMATION
  Report Type: 
  Country: None (occurrence: None)
  Receive Date: 20111118
  Receipt Date: 20111109
  Transmission Date: 20120403
  Serious: Yes (Hospitalization, Other)
  Sender: FDA-Public Use
  Company Number: US-BAYER-2011-010441

PATIENT
  Age: 18 Year
  Sex: Female
  Weight: 71 kg

DRUGS (11)
  1. YASMIN [Suspect]
     Indication: CONTRACEPTION
     Dosage: UNK
     Dates: start: 20080401, end: 20090401
  2. YASMIN [Suspect]
     Indication: PREMENSTRUAL SYNDROME
  3. DROSPIRENONE AND ETHINYL ESTRADIOL [Suspect]
     Indication: PREMENSTRUAL SYNDROME
  4. PREVACID [Concomitant]
  5. DROSPIRENONE AND ETHINYL ESTRADIOL [Suspect]
     Indication: CONTRACEPTION
     Dosage: UNK
     Dates: start: 20080401, end: 20090401
  6. DROSPIRENONE AND ETHINYL ESTRADIOL [Suspect]
  7. HERBAL TAB FOR DIGESTION [Concomitant]
  8. RESCON [CHLORPHENAMINE MALEATE,PSEUDOEPHEDRINE] [Concomitant]
  9. CALCIUM [Concomitant]
  10. YASMIN [Suspect]
  11. GUMMY BEAR VITAMINS [Concomitant]

REACTIONS (6)
  - BILIARY DYSKINESIA [None]
  - GALLBLADDER INJURY [None]
  - CHOLECYSTITIS CHRONIC [None]
  - PAIN [None]
  - EMOTIONAL DISTRESS [None]
  - ANXIETY [None]
